FAERS Safety Report 20724054 (Version 1)
Quarter: 2022Q2

REPORT INFORMATION
  Report Type: Spontaneous
  Country: CN (occurrence: CN)
  Receive Date: 20220419
  Receipt Date: 20220419
  Transmission Date: 20220721
  Serious: Yes (Other)
  Sender: FDA-Public Use
  Company Number: CN-ASTELLAS-2022US013458

PATIENT
  Age: 84 Year
  Sex: Male
  Weight: 72 kg

DRUGS (1)
  1. HARNAL [Suspect]
     Active Substance: TAMSULOSIN HYDROCHLORIDE
     Indication: Benign prostatic hyperplasia
     Dosage: 0.2 MG, QD
     Route: 048
     Dates: start: 20220313, end: 20220314

REACTIONS (7)
  - Depressed level of consciousness [Recovered/Resolved]
  - Cerebral infarction [Unknown]
  - Syncope [Recovered/Resolved]
  - Aphasia [Recovered/Resolved]
  - Fatigue [Recovered/Resolved]
  - Condition aggravated [Unknown]
  - Orthostatic hypotension [Unknown]

NARRATIVE: CASE EVENT DATE: 20220314
